FAERS Safety Report 23933692 (Version 3)
Quarter: 2024Q3

REPORT INFORMATION
  Report Type: Report from Study
  Country: US (occurrence: US)
  Receive Date: 20240603
  Receipt Date: 20240925
  Transmission Date: 20241017
  Serious: Yes (Hospitalization, Other)
  Sender: BAYER
  Company Number: US-BAYER-2024A080668

PATIENT
  Age: 52 Year
  Sex: Female
  Weight: 70.295 kg

DRUGS (6)
  1. ADEMPAS [Suspect]
     Active Substance: RIOCIGUAT
     Indication: Pulmonary arterial hypertension
     Dosage: UNK
  2. ADEMPAS [Suspect]
     Active Substance: RIOCIGUAT
     Indication: Pulmonary arterial hypertension
     Dosage: 2.5 MG, TID
     Route: 048
  3. ADEMPAS [Suspect]
     Active Substance: RIOCIGUAT
     Indication: Pulmonary arterial hypertension
     Dosage: 1 MG, TID
     Route: 048
  4. ASPIRIN [Concomitant]
     Active Substance: ASPIRIN
  5. OPSUMIT [Concomitant]
     Active Substance: MACITENTAN
  6. OXYGEN [Concomitant]
     Active Substance: OXYGEN

REACTIONS (8)
  - Chest pain [None]
  - Dyspnoea [None]
  - Abdominal pain upper [None]
  - Hospitalisation [None]
  - Therapy cessation [None]
  - Dyspnoea [None]
  - Chest pain [None]
  - Incorrect product administration duration [None]

NARRATIVE: CASE EVENT DATE: 20240901
